FAERS Safety Report 6725678-9 (Version None)
Quarter: 2010Q2

REPORT INFORMATION
  Report Type: 
  Country: None (occurrence: None)
  Receive Date: 20100514
  Receipt Date: 20100505
  Transmission Date: 20101027
  Serious: Yes (Other)
  Sender: FDA-Public Use
  Company Number: BE-SANOFI-AVENTIS-2010SA026319

PATIENT
  Sex: Male

DRUGS (5)
  1. OXALIPLATIN [Suspect]
     Indication: COLON CANCER
  2. OXALIPLATIN [Suspect]
  3. OXALIPLATIN [Suspect]
  4. XELODA [Concomitant]
  5. AVASTIN [Concomitant]

REACTIONS (1)
  - HAEMOLYSIS [None]
